FAERS Safety Report 4852226-0 (Version None)
Quarter: 2005Q4

REPORT INFORMATION
  Report Type: 
  Country: None (occurrence: None)
  Receive Date: 20051123
  Receipt Date: 20050624
  Transmission Date: 20060501
  Serious: Yes (Other)
  Sender: FDA-Public Use
  Company Number: K200500881

PATIENT
  Sex: Female

DRUGS (2)
  1. PITOCIN [Suspect]
     Indication: PREGNANCY
     Dosage: INTRAVENOUS
     Route: 042
     Dates: start: 20000101, end: 20000101
  2. OTHER UNSPECIFIED MEDS [Concomitant]

REACTIONS (1)
  - UTERINE RUPTURE [None]
